FAERS Safety Report 20947803 (Version 1)
Quarter: 2022Q2

REPORT INFORMATION
  Report Type: Report from Study
  Country: AU (occurrence: AU)
  Receive Date: 20220611
  Receipt Date: 20220611
  Transmission Date: 20220721
  Serious: Yes (Death)
  Sender: FDA-Public Use
  Company Number: AU-BAYER-2022A081348

PATIENT
  Sex: Male

DRUGS (1)
  1. VENTAVIS [Suspect]
     Active Substance: ILOPROST
     Indication: Product used for unknown indication
     Route: 055

REACTIONS (1)
  - Death [Fatal]
